FAERS Safety Report 6523668-2 (Version None)
Quarter: 2009Q4

REPORT INFORMATION
  Report Type: 
  Country: None (occurrence: None)
  Receive Date: 20091231
  Receipt Date: 20091222
  Transmission Date: 20100525
  Serious: Yes (Other)
  Sender: FDA-Public Use
  Company Number: CA-ASTRAZENECA-2009SE33440

PATIENT
  Age: 62 Year
  Sex: Female

DRUGS (9)
  1. CRESTOR [Suspect]
     Route: 048
  2. LOSEC TABLETS [Suspect]
     Indication: DYSPEPSIA
     Route: 048
  3. ARIMIDEX [Suspect]
     Indication: BREAST CANCER
     Route: 048
  4. COZAAR [Concomitant]
     Indication: HYPERTENSION
  5. PAXIL [Concomitant]
     Indication: ANXIETY
  6. GAVISCON [Concomitant]
     Indication: DYSPEPSIA
     Dosage: PRN
  7. VITAMIN D [Concomitant]
  8. LOVAZA [Concomitant]
  9. VITAMIN B 50 [Concomitant]

REACTIONS (4)
  - BREAST CANCER [None]
  - DEPRESSION [None]
  - DYSPEPSIA [None]
  - MYALGIA [None]
